FAERS Safety Report 7370513-1 (Version None)
Quarter: 2011Q1

REPORT INFORMATION
  Report Type: 
  Country: None (occurrence: None)
  Receive Date: 20110314
  Receipt Date: 20110301
  Transmission Date: 20110831
  Serious: Yes (Other)
  Sender: FDA-Public Use
  Company Number: JP-2011-10226

PATIENT
  Age: 80 Year
  Sex: Female

DRUGS (6)
  1. SAMSCA [Suspect]
     Indication: CARDIAC FAILURE CONGESTIVE
     Dosage: 15 MG MILLIGRAM(S), QD, ORAL
     Route: 048
     Dates: start: 20110202, end: 20110204
  2. DOPAMINE HYDROCHLORIDE [Concomitant]
  3. ALBUMINAR (HUMAN SERUM ALBUMIN) [Concomitant]
  4. HANP (CARPERITIDE(GENETICAL RECOMBINATION)) [Concomitant]
  5. LASIX [Concomitant]
  6. BFLUID (MIXED AMINO ACID_CARBOHYDRATE_ELECTROLYTE_VITAMIN COMBINE) [Concomitant]

REACTIONS (2)
  - HYPERNATRAEMIA [None]
  - ALTERED STATE OF CONSCIOUSNESS [None]
